FAERS Safety Report 18261386 (Version 2)
Quarter: 2020Q3

REPORT INFORMATION
  Report Type: Spontaneous
  Country: US (occurrence: US)
  Receive Date: 20200914
  Receipt Date: 20200915
  Transmission Date: 20201103
  Serious: Yes (Other)
  Sender: FDA-Public Use
  Company Number: US-PFIZER INC-2020345946

PATIENT
  Age: 67 Year
  Sex: Female
  Weight: 160 kg

DRUGS (36)
  1. VENTOLINE [SALBUTAMOL SULFATE] [Concomitant]
     Active Substance: ALBUTEROL SULFATE
     Indication: WHEEZING
  2. VOLTARENE (DICLOFENAC SODIUM) [Concomitant]
     Active Substance: DICLOFENAC SODIUM
     Indication: ARTHRALGIA
  3. LOMOTIL [Concomitant]
     Active Substance: ATROPINE SULFATE\DIPHENOXYLATE HYDROCHLORIDE
     Indication: DIARRHOEA
     Dosage: UNK, 4X/DAY (2.5?0.025 MG)
     Route: 048
     Dates: start: 20200514
  4. DURAGESIC [Concomitant]
     Active Substance: FENTANYL
     Indication: PAIN
     Dosage: 12 MCG/H (EVERY 72 HOUR)
     Route: 062
     Dates: start: 20191031
  5. LASIX [Concomitant]
     Active Substance: FUROSEMIDE
     Indication: OEDEMA PERIPHERAL
     Dosage: 20 MG, 1X/DAY
     Route: 048
     Dates: start: 20191214
  6. MULTIVITAMINUM [Concomitant]
     Active Substance: VITAMINS
     Indication: SUPPLEMENTATION THERAPY
     Dosage: 3 DF, 1X/DAY
     Route: 048
     Dates: start: 1978
  7. MIRALAX [Concomitant]
     Active Substance: POLYETHYLENE GLYCOL 3350
     Indication: CONSTIPATION
     Dosage: 17 G, AS NEEDED (17 G P.O. QD, PRN)
     Route: 048
     Dates: start: 20190418
  8. AVELUMAB [Concomitant]
     Active Substance: AVELUMAB
     Indication: BREAST CANCER
     Dosage: 800 MG
     Route: 042
     Dates: start: 20200826, end: 20200826
  9. PELAREOREP [Concomitant]
     Active Substance: PELAREOREP
     Indication: BREAST CANCER
     Dosage: UNK, (4.5 X 10E10 TCID50), DAYS 1, 2
     Route: 042
     Dates: start: 20200824
  10. TYLENOL [Concomitant]
     Active Substance: ACETAMINOPHEN
     Indication: PAIN
  11. PROZAC [Concomitant]
     Active Substance: FLUOXETINE HYDROCHLORIDE
     Indication: MAJOR DEPRESSION
     Dosage: 60 MG (QAM)
     Route: 048
     Dates: start: 20110831
  12. COZAAR [Concomitant]
     Active Substance: LOSARTAN POTASSIUM
     Indication: ESSENTIAL HYPERTENSION
     Dosage: 100 MG, 1X/DAY
     Route: 048
     Dates: start: 20170503
  13. VENTOLINE [SALBUTAMOL SULFATE] [Concomitant]
     Active Substance: ALBUTEROL SULFATE
     Indication: DYSPNOEA
     Dosage: UNK UNK, AS NEEDED (1?2 PUFFS QID)
     Dates: start: 20111023
  14. CHOLECALCIFEROL [Concomitant]
     Active Substance: CHOLECALCIFEROL
     Indication: VITAMIN D DEFICIENCY
     Dosage: 50000 IU, WEEKLY (EVERY 7 DAYS)
     Route: 048
     Dates: start: 20180712
  15. CYANOCOBALAMIN. [Concomitant]
     Active Substance: CYANOCOBALAMIN
     Indication: SUPPLEMENTATION THERAPY
     Dosage: 1000 UG, DAILY
     Route: 048
     Dates: start: 20200217
  16. VOLTARENE (DICLOFENAC SODIUM) [Concomitant]
     Active Substance: DICLOFENAC SODIUM
     Indication: BACK PAIN
  17. GUAIFENESINE [Concomitant]
     Active Substance: GUAIFENESIN
     Indication: COUGH
     Dosage: UNK UNK, AS NEEDED (EVERY 4 HOURS)
     Route: 048
     Dates: start: 1958
  18. PROTONIX [Concomitant]
     Active Substance: PANTOPRAZOLE SODIUM
     Indication: REFLUX GASTRITIS
     Dosage: 40 MG, 1X/DAY
     Route: 048
     Dates: start: 20190503
  19. K?DUR [Concomitant]
     Active Substance: POTASSIUM CHLORIDE
     Indication: HYPOKALAEMIA
     Dosage: 20 MEQ, 1X/DAY
     Route: 048
     Dates: start: 20191214
  20. COMPAZINE [Concomitant]
     Active Substance: PROCHLORPERAZINE MALEATE
     Indication: NAUSEA
  21. ROXICODONE [Concomitant]
     Active Substance: OXYCODONE HYDROCHLORIDE
     Indication: PAIN
     Dosage: 5 MG, AS NEEDED (5 MG P.O. Q6H,)
     Route: 048
     Dates: start: 20190919
  22. PHENERGAN [Concomitant]
     Active Substance: PROMETHAZINE HYDROCHLORIDE
     Indication: VOMITING
     Dosage: 6.25 ? 12.5 MG (Q6H, PRN)
     Route: 048
     Dates: start: 20190514
  23. NORMAL SALINE [Concomitant]
     Active Substance: SODIUM CHLORIDE
     Indication: VEHICLE SOLUTION USE
     Dosage: 500 ML (TOGETHER WITH VANCOCIN)
     Dates: start: 20200826, end: 20200827
  24. MAXIPIME [Suspect]
     Active Substance: CEFEPIME HYDROCHLORIDE
     Indication: PNEUMONIA
     Dosage: 2 G, 3X/DAY
     Dates: start: 20200826
  25. VANCOCIN [Suspect]
     Active Substance: VANCOMYCIN HYDROCHLORIDE
     Indication: PNEUMONIA
     Dosage: 1500 MG (IN 500ML NORMAL SALINE)
     Dates: start: 20200826, end: 20200827
  26. COMPAZINE [Concomitant]
     Active Substance: PROCHLORPERAZINE MALEATE
     Indication: VOMITING
     Dosage: 10 MG, AS NEEDED (10MG P.O. QID, PRN)
     Route: 048
     Dates: start: 20191031
  27. PHENERGAN [Concomitant]
     Active Substance: PROMETHAZINE HYDROCHLORIDE
     Indication: NAUSEA
  28. SENOKOT?S [Concomitant]
     Active Substance: DOCUSATE SODIUM\SENNOSIDES
     Indication: CONSTIPATION
     Dosage: 8.6?50 MG (QD, PRN)
     Route: 048
     Dates: start: 20190408
  29. TYLENOL [Concomitant]
     Active Substance: ACETAMINOPHEN
     Indication: MIGRAINE
     Dosage: 1000 MG, 3X/DAY
     Route: 048
     Dates: start: 20100318
  30. EPINEPHRINE. [Concomitant]
     Active Substance: EPINEPHRINE
     Indication: ANAPHYLACTIC REACTION
     Dosage: 0.3/0.3ML (PRN ? ONCE AS NEEDED FOR UP TO 1 DOSE)
     Route: 030
     Dates: start: 20121008
  31. DESYREL [Concomitant]
     Active Substance: TRAZODONE HYDROCHLORIDE
     Indication: INSOMNIA
     Dosage: 25 ? 50 MG  (QHS, PRN)
     Route: 048
     Dates: start: 20110905
  32. VOLTARENE (DICLOFENAC SODIUM) [Concomitant]
     Active Substance: DICLOFENAC SODIUM
     Indication: NECK PAIN
     Dosage: TOPICALLY TID, PRN
     Route: 061
     Dates: start: 20081230
  33. TOPROL XL [Concomitant]
     Active Substance: METOPROLOL SUCCINATE
     Indication: ESSENTIAL HYPERTENSION
     Dosage: 100 MG, 1X/DAY
     Route: 048
     Dates: start: 20170503
  34. BACTRIM DS [Concomitant]
     Active Substance: SULFAMETHOXAZOLE\TRIMETHOPRIM
     Indication: URINARY TRACT INFECTION
     Dosage: 160/800 MG P.O. EVERY MONDAY, WEDNESDAY, FRIDAY SINCE
     Route: 048
     Dates: start: 20200514
  35. PACLITAXEL. [Concomitant]
     Active Substance: PACLITAXEL
     Indication: BREAST CANCER
     Dosage: 171 G, DAY 1
     Route: 042
     Dates: start: 20200824
  36. VOLTARENE (DICLOFENAC SODIUM) [Concomitant]
     Active Substance: DICLOFENAC SODIUM
     Indication: ARTHRALGIA

REACTIONS (7)
  - White blood cell count decreased [Unknown]
  - Procalcitonin increased [Unknown]
  - Troponin increased [Unknown]
  - Fatigue [Unknown]
  - Headache [Unknown]
  - Neutrophil count decreased [Unknown]
  - Rales [Unknown]

NARRATIVE: CASE EVENT DATE: 20200826
